FAERS Safety Report 10084962 (Version 1)
Quarter: 2014Q2

REPORT INFORMATION
  Report Type: Report from Study
  Country: US (occurrence: US)
  Receive Date: 20140417
  Receipt Date: 20140417
  Transmission Date: 20141212
  Serious: Yes (Other)
  Sender: FDA-Public Use
  Company Number: US-ABBVIE-14P-163-1223993-00

PATIENT
  Sex: Female

DRUGS (3)
  1. HUMIRA [Suspect]
     Indication: RHEUMATOID ARTHRITIS
     Dates: start: 2008, end: 2011
  2. METHOTREXATE [Concomitant]
     Indication: PRODUCT USED FOR UNKNOWN INDICATION
     Dosage: 8 WEEKLY
  3. PREDNISONE [Concomitant]
     Indication: RHEUMATOID ARTHRITIS

REACTIONS (2)
  - Intervertebral disc protrusion [Recovered/Resolved]
  - Rheumatoid arthritis [Unknown]
